FAERS Safety Report 21943564 (Version 3)
Quarter: 2023Q1

REPORT INFORMATION
  Report Type: Report from Study
  Country: GB (occurrence: GB)
  Receive Date: 20230202
  Receipt Date: 20230315
  Transmission Date: 20230418
  Serious: Yes (Other)
  Sender: FDA-Public Use
  Company Number: GB-ABBVIE-4291142

PATIENT
  Age: 71 Year
  Sex: Female

DRUGS (8)
  1. CARBIDOPA\LEVODOPA [Suspect]
     Active Substance: CARBIDOPA\LEVODOPA
     Indication: Parkinson^s disease
     Dosage: MD:3.2MLS CR:2.4MLS ED:0.5MLS
     Route: 050
  2. CARBIDOPA\LEVODOPA [Suspect]
     Active Substance: CARBIDOPA\LEVODOPA
     Dosage: MD:3.2MLS CR:2.6MLS ED:0.5MLS, 20MGS/5MGS
     Route: 050
  3. CARBIDOPA\LEVODOPA [Suspect]
     Active Substance: CARBIDOPA\LEVODOPA
     Dosage: MORNING DOSE IS 3.7, CONTINUOUS RATE 2.6 AND EXTRA DOSE 0.7.
     Route: 050
     Dates: start: 2023, end: 2023
  4. CARBIDOPA\LEVODOPA [Suspect]
     Active Substance: CARBIDOPA\LEVODOPA
     Dosage: MD 3.2MLS; ED 0.7MLS AND CR 2.8MLS
     Route: 050
     Dates: start: 2023
  5. CARBIDOPA\LEVODOPA [Suspect]
     Active Substance: CARBIDOPA\LEVODOPA
     Dosage: MORNING DOSE IS 3.7, CONTINUOUS RATE 2.6 AND EXTRA DOSE 0.7.
     Route: 050
     Dates: end: 2023
  6. Co careldopa MR [Concomitant]
     Indication: Product used for unknown indication
     Dosage: 25/100MGS, TWO TABLETS
  7. Co careldopa MR [Concomitant]
     Indication: Product used for unknown indication
     Dosage: 25/100MGS/FREQUENCY TEXT: AT NIGHT
  8. CLONAZEPAM [Concomitant]
     Active Substance: CLONAZEPAM
     Indication: Product used for unknown indication
     Route: 048

REACTIONS (21)
  - Lymphocytic leukaemia [Unknown]
  - Parkinson^s disease [Unknown]
  - Dizziness [Unknown]
  - Fall [Unknown]
  - On and off phenomenon [Unknown]
  - Freezing phenomenon [Recovered/Resolved]
  - Gait disturbance [Unknown]
  - Malaise [Unknown]
  - Hypertension [Recovering/Resolving]
  - Somnolence [Unknown]
  - Dystonia [Unknown]
  - Mobility decreased [Unknown]
  - General symptom [Not Recovered/Not Resolved]
  - Blood pressure decreased [Unknown]
  - Depressed mood [Not Recovered/Not Resolved]
  - Posture abnormal [Unknown]
  - Areflexia [Unknown]
  - Dyskinesia [Not Recovered/Not Resolved]
  - Depression [Not Recovered/Not Resolved]
  - Tremor [Unknown]
  - Muscle rigidity [Not Recovered/Not Resolved]

NARRATIVE: CASE EVENT DATE: 20230101
